FAERS Safety Report 11243870 (Version 1)
Quarter: 2015Q3

REPORT INFORMATION
  Report Type: Spontaneous
  Country: CH (occurrence: FR)
  Receive Date: 20150707
  Receipt Date: 20150707
  Transmission Date: 20151125
  Serious: Yes (Other)
  Sender: FDA-Public Use
  Company Number: CH-LPDUSPRD-20150510

PATIENT
  Age: 54 Year
  Sex: Female

DRUGS (4)
  1. DICYONE [Suspect]
     Active Substance: ETHAMSYLATE
     Route: 048
     Dates: start: 20140820, end: 201408
  2. DECAPEPTYL LP [Concomitant]
     Dosage: 11.25 MG, 1
     Route: 030
     Dates: start: 201408
  3. VENOFER [Suspect]
     Active Substance: IRON SUCROSE
     Dosage: 1 IN 1 TOTAL
     Route: 040
     Dates: start: 20140813, end: 20140813
  4. XARELTO [Concomitant]
     Active Substance: RIVAROXABAN
     Dosage: 30 MG 1 IN 1 D
     Route: 048
     Dates: start: 20140811

REACTIONS (1)
  - Dermatitis bullous [Unknown]

NARRATIVE: CASE EVENT DATE: 201408
